FAERS Safety Report 8710067 (Version 3)
Quarter: 2020Q3

REPORT INFORMATION
  Report Type: Report from Study
  Country: JP (occurrence: JP)
  Receive Date: 20120806
  Receipt Date: 20130207
  Transmission Date: 20201105
  Serious: Yes (Hospitalization, Other)
  Sender: FDA-Public Use
  Company Number: JP-009507513-1204USA00960

PATIENT
  Age: 30 Year
  Sex: Female
  Weight: 41.7 kg

DRUGS (11)
  1. ALLELOCK [Concomitant]
     Active Substance: OLOPATADINE HYDROCHLORIDE
     Indication: DERMATITIS ATOPIC
     Dosage: 5 MG, BID
     Route: 048
     Dates: start: 20111023
  2. REBETOL [Suspect]
     Active Substance: RIBAVIRIN
     Dosage: TREATMENT 2
     Route: 048
     Dates: start: 20111122, end: 20120326
  3. PYDOXAL [Concomitant]
     Active Substance: PYRIDOXAL
     Indication: DERMATITIS ATOPIC
     Dosage: 10 MG, TID
     Route: 048
     Dates: start: 20111023, end: 20120403
  4. PEGINTERFERON ALFA?2B [Suspect]
     Active Substance: PEGINTERFERON ALFA-2B
     Indication: CHRONIC HEPATITIS C
     Dosage: 60 ?G, QW
     Route: 058
     Dates: start: 20111122, end: 20120321
  5. REBETOL [Suspect]
     Active Substance: RIBAVIRIN
     Indication: CHRONIC HEPATITIS C
     Dosage: TREATMENT 1
     Route: 048
     Dates: start: 20111122, end: 20120327
  6. ALLEGRA [Concomitant]
     Active Substance: FEXOFENADINE HYDROCHLORIDE
     Indication: DERMATITIS ATOPIC
     Dosage: 60 MG, BID
     Route: 048
     Dates: start: 20111023
  7. VANIPREVIR. [Suspect]
     Active Substance: VANIPREVIR
     Indication: CHRONIC HEPATITIS C
     Dosage: 300 MG, BID
     Route: 048
     Dates: start: 20111122
  8. FLAVITAN [Concomitant]
     Active Substance: FLAVIN ADENINE DINUCLEOTIDE
     Indication: DERMATITIS ATOPIC
     Dosage: 10 MG, TID
     Route: 048
     Dates: start: 20111023, end: 20120403
  9. KERATINAMIN [Concomitant]
     Indication: DERMATITIS ATOPIC
     Dosage: 1 DF, PRN
     Route: 061
     Dates: start: 20111023
  10. MYSLEE [Concomitant]
     Active Substance: ZOLPIDEM TARTRATE
     Indication: INSOMNIA
     Dosage: 10 MG, QD
     Route: 048
     Dates: start: 20111116, end: 20120403
  11. LIDOMEX [Concomitant]
     Active Substance: PREDNISOLONE VALERATE ACETATE
     Indication: DERMATITIS ATOPIC
     Dosage: 1 DF, PRN
     Route: 061
     Dates: start: 20111023

REACTIONS (1)
  - Depression [Recovering/Resolving]

NARRATIVE: CASE EVENT DATE: 20120207
